FAERS Safety Report 8377890-3 (Version None)
Quarter: 2012Q2

REPORT INFORMATION
  Report Type: 
  Country: None (occurrence: None)
  Receive Date: 20120522
  Receipt Date: 20120516
  Transmission Date: 20120825
  Serious: No
  Sender: FDA-Public Use
  Company Number: PH-PFIZER INC-2012093145

PATIENT
  Age: 34 Year
  Sex: Female

DRUGS (1)
  1. CLINDAMYCIN HCL [Suspect]
     Dosage: 600 MG, 4X/DAY
     Route: 042
     Dates: start: 20120411, end: 20120416

REACTIONS (2)
  - DRUG INEFFECTIVE [None]
  - PYREXIA [None]
